FAERS Safety Report 5045497-1 (Version None)
Quarter: 2006Q2

REPORT INFORMATION
  Report Type: 
  Country: None (occurrence: None)
  Receive Date: 20060601
  Receipt Date: 20060404
  Transmission Date: 20061013
  Serious: No
  Sender: FDA-Public Use
  Company Number: 2006-BP-03793BP

PATIENT
  Age: 65 Year
  Sex: Female

DRUGS (5)
  1. SPIRIVA [Suspect]
     Indication: CHRONIC OBSTRUCTIVE PULMONARY DISEASE
     Dosage: 18 MCG (18 MCG, 1 PUFF), IH
     Route: 055
     Dates: start: 20060201
  2. O2 [Concomitant]
  3. ALBUTEROL SPIROS [Concomitant]
  4. DIABETIC PILL [Concomitant]
  5. HEART PILL [Concomitant]

REACTIONS (1)
  - DRUG INEFFECTIVE [None]
